FAERS Safety Report 13004239 (Version 4)
Quarter: 2017Q1

REPORT INFORMATION
  Report Type: Spontaneous
  Country: IT (occurrence: IT)
  Receive Date: 20161206
  Receipt Date: 20170118
  Transmission Date: 20170428
  Serious: Yes (Life-Threatening)
  Sender: FDA-Public Use
  Company Number: IT-ROCHE-1863952

PATIENT
  Age: 56 Year
  Sex: Female
  Weight: 75 kg

DRUGS (17)
  1. ENDOXAN BAXTER [Concomitant]
     Active Substance: CYCLOPHOSPHAMIDE
     Indication: DIFFUSE LARGE B-CELL LYMPHOMA
     Route: 042
     Dates: start: 20161111, end: 20161111
  2. FOLINA (ITALY) [Concomitant]
     Dosage: 1 YEAR
     Route: 048
  3. KCL-RETARD [Concomitant]
     Active Substance: POTASSIUM CHLORIDE
     Route: 048
     Dates: start: 20161109, end: 20161112
  4. MABTHERA [Suspect]
     Active Substance: RITUXIMAB
     Indication: DIFFUSE LARGE B-CELL LYMPHOMA
     Route: 042
     Dates: start: 20161112, end: 20161112
  5. TRIMETON (ITALY) [Concomitant]
     Indication: ANAPHYLAXIS PROPHYLAXIS
     Dosage: ^10 MG/1 ML SOLUTION FOR INJECTION^ 5 X 1 ML
     Route: 042
     Dates: start: 20161112, end: 20161112
  6. ANTRA [Concomitant]
     Active Substance: OMEPRAZOLE
     Indication: PROPHYLAXIS AGAINST GASTROINTESTINAL ULCER
     Route: 065
     Dates: start: 20161109, end: 20161112
  7. URBASON [Concomitant]
     Active Substance: METHYLPREDNISOLONE
     Indication: ANAPHYLAXIS PROPHYLAXIS
     Dosage: SOLUBLE?40MG/ML 1 AMPOULE OF POWDER + 1 AMPOULE OF SOLVENT
     Route: 042
     Dates: start: 20161112, end: 20161112
  8. NEBIVOLOL. [Concomitant]
     Active Substance: NEBIVOLOL
     Indication: HYPERTENSION
     Dosage: PERIOD: 1 YEAR
     Route: 048
  9. VINCRISTINE [Concomitant]
     Active Substance: VINCRISTINE
     Indication: DIFFUSE LARGE B-CELL LYMPHOMA
     Route: 042
     Dates: start: 20161111, end: 20161111
  10. TACHIPIRINA [Concomitant]
     Active Substance: ACETAMINOPHEN
     Route: 048
     Dates: start: 20161112, end: 20161112
  11. ALBUMINA GRIFOLS [Concomitant]
     Indication: HYPOALBUMINAEMIA
     Route: 042
     Dates: start: 20161109, end: 20161112
  12. LAEVOLAC [Concomitant]
     Active Substance: LACTULOSE
     Route: 048
     Dates: start: 20161109, end: 20161112
  13. BACTRIM [Concomitant]
     Active Substance: SULFAMETHOXAZOLE\TRIMETHOPRIM
     Indication: ANTIBIOTIC PROPHYLAXIS
     Route: 048
     Dates: start: 20161109, end: 20161112
  14. LASIX [Concomitant]
     Active Substance: FUROSEMIDE
     Dosage: ^20 MG/2 ML SOLUTION FOR INJECTION 5 X 2 ML, AMPOULES
     Route: 065
     Dates: start: 20161109, end: 20161112
  15. BLOPRESS [Concomitant]
     Active Substance: CANDESARTAN CILEXETIL
     Indication: HYPERTENSION
     Dosage: PERIOD: 1 YEAR
     Route: 048
  16. DIBASE [Concomitant]
     Active Substance: CHOLECALCIFEROL
     Indication: OSTEOPOROSIS PROPHYLAXIS
     Dosage: INTERNATIONAL UNITS IN THOUSANDS, PERIOD: 1 YEAR
     Route: 048
  17. SIMVASTATIN. [Concomitant]
     Active Substance: SIMVASTATIN
     Indication: HYPERCHOLESTEROLAEMIA
     Dosage: PERIOD: 1 YEAR
     Route: 048

REACTIONS (2)
  - Infusion related reaction [Recovered/Resolved]
  - Acute respiratory failure [Recovered/Resolved]

NARRATIVE: CASE EVENT DATE: 20161112
